FAERS Safety Report 9841662 (Version 2)
Quarter: 2014Q1

REPORT INFORMATION
  Report Type: Spontaneous
  Country: IE (occurrence: IE)
  Receive Date: 20140124
  Receipt Date: 20140310
  Transmission Date: 20141002
  Serious: Yes (Death)
  Sender: FDA-Public Use
  Company Number: IE-JNJFOC-20140109766

PATIENT
  Age: 32 Year
  Sex: Male

DRUGS (3)
  1. HALOPERIDOL [Suspect]
     Indication: PSYCHOTIC DISORDER
     Dosage: APPROXIMATELY 10 MG
     Route: 065
  2. METHADONE [Suspect]
     Indication: PSYCHOTIC DISORDER
     Route: 065
  3. CLOZAPINE [Suspect]
     Indication: PSYCHOTIC DISORDER
     Route: 065

REACTIONS (1)
  - Arrhythmia [Fatal]
